FAERS Safety Report 24293888 (Version 1)
Quarter: 2024Q3

REPORT INFORMATION
  Report Type: Spontaneous
  Country: US (occurrence: None)
  Receive Date: 20240906
  Receipt Date: 20240906
  Transmission Date: 20241016
  Serious: No
  Sender: DOMPE FARMACEUTICI
  Company Number: US-FARMAPROD-202403-0758

PATIENT
  Age: 73 Year
  Sex: Female
  Weight: 52.16 kg

DRUGS (37)
  1. OXERVATE [Suspect]
     Active Substance: CENEGERMIN-BKBJ
     Indication: Neurotrophic keratopathy
     Route: 047
     Dates: start: 20240227, end: 20240424
  2. OXERVATE [Suspect]
     Active Substance: CENEGERMIN-BKBJ
  3. OXERVATE [Suspect]
     Active Substance: CENEGERMIN-BKBJ
  4. MAGNESIUM [Concomitant]
     Active Substance: MAGNESIUM
  5. CEQUA [Concomitant]
     Active Substance: CYCLOSPORINE
     Dosage: DROPERETTE
  6. NITROFURANTOIN [Concomitant]
     Active Substance: NITROFURANTOIN
  7. ASPIRIN [Concomitant]
     Active Substance: ASPIRIN
  8. ALPRAZOLAM [Concomitant]
     Active Substance: ALPRAZOLAM
  9. HYDROCODONE BITARTRATE AND ACETAMINOPHEN [Concomitant]
     Active Substance: ACETAMINOPHEN\HYDROCODONE BITARTRATE
  10. METHOCARBAMOL [Concomitant]
     Active Substance: METHOCARBAMOL
  11. VITAMIN C [Concomitant]
     Active Substance: ASCORBIC ACID
  12. PILOCARPINE HYDROCHLORIDE [Concomitant]
     Active Substance: PILOCARPINE HYDROCHLORIDE
  13. FISH OIL [Concomitant]
     Active Substance: FISH OIL
     Dosage: 1200-144MG
  14. RIVASTIGMINE [Concomitant]
     Active Substance: RIVASTIGMINE
  15. ZENPEP [Concomitant]
     Active Substance: PANCRELIPASE AMYLASE\PANCRELIPASE LIPASE\PANCRELIPASE PROTEASE
     Dosage: 25-79-105K
  16. PROLIA [Concomitant]
     Active Substance: DENOSUMAB
     Dosage: 60 MG/ML SYRINGE,
  17. MIRALAX [Concomitant]
     Active Substance: POLYETHYLENE GLYCOL 3350
     Dosage: 17 G/DOSE
  18. DULCOLAX [Concomitant]
  19. ALPRAZOLAM [Concomitant]
     Active Substance: ALPRAZOLAM
  20. SYSTANE COMPLETE [Concomitant]
     Active Substance: PROPYLENE GLYCOL
  21. XIIDRA [Concomitant]
     Active Substance: LIFITEGRAST
     Dosage: DROPERETTE
  22. MOVANTIK [Concomitant]
     Active Substance: NALOXEGOL OXALATE
  23. POTASSIUM CHLORIDE [Concomitant]
     Active Substance: POTASSIUM CHLORIDE
     Dosage: 20 MEQ
  24. ONDANSETRON HYDROCHLORIDE [Concomitant]
     Active Substance: ONDANSETRON HYDROCHLORIDE
  25. ESTRADIOL [Concomitant]
     Active Substance: ESTRADIOL
     Dosage: CREAM WITH APPLICATOR
  26. HYDROXYCHLOROQUINE SULFATE [Concomitant]
     Active Substance: HYDROXYCHLOROQUINE SULFATE
  27. NITROFURANTOIN MONOMACRO [Concomitant]
  28. SYSTANE (HYPROMELLOSE 2910 (4000 MPA.S)) [Concomitant]
     Active Substance: HYPROMELLOSE 2910 (4000 MPA.S)
     Dosage: 3%-94%
  29. RESTASIS [Concomitant]
     Active Substance: CYCLOSPORINE
     Dosage: DROPERETTE
  30. DEXAMETHASONE\TOBRAMYCIN [Concomitant]
     Active Substance: DEXAMETHASONE\TOBRAMYCIN
  31. OXYCODONE [Concomitant]
     Active Substance: OXYCODONE
  32. FERROUS SULFATE [Concomitant]
     Active Substance: FERROUS SULFATE
     Dosage: 325(65)
  33. LOTEMAX [Concomitant]
     Active Substance: LOTEPREDNOL ETABONATE
  34. ZENPEP [Concomitant]
     Active Substance: PANCRELIPASE AMYLASE\PANCRELIPASE LIPASE\PANCRELIPASE PROTEASE
     Dosage: 40-126-168
  35. ESOMEPRAZOLE MAGNESIUM [Concomitant]
     Active Substance: ESOMEPRAZOLE MAGNESIUM
  36. OPTASE [Concomitant]
  37. SERUM TEARS [Concomitant]

REACTIONS (9)
  - Product dose omission issue [Unknown]
  - Eye irritation [Unknown]
  - Ocular hyperaemia [Unknown]
  - Eye irritation [Unknown]
  - Eyelid pain [Unknown]
  - Eye pain [Not Recovered/Not Resolved]
  - Foreign body sensation in eyes [Not Recovered/Not Resolved]
  - Eye discharge [Not Recovered/Not Resolved]
  - Eye swelling [Unknown]

NARRATIVE: CASE EVENT DATE: 20240319
